FAERS Safety Report 26125630 (Version 2)
Quarter: 2025Q4

REPORT INFORMATION
  Report Type: Spontaneous
  Country: JP (occurrence: JP)
  Receive Date: 20251205
  Receipt Date: 20251226
  Transmission Date: 20260118
  Serious: Yes (Hospitalization)
  Sender: BAYER HEALTHCARE PHARMACEUTICALS INC.
  Company Number: JP-BAYER-2025A160614

PATIENT
  Age: 91 Year
  Sex: Female

DRUGS (1)
  1. KERENDIA [Suspect]
     Active Substance: FINERENONE
     Indication: Cardiac failure
     Dosage: DAILY DOSE 10 MG

REACTIONS (4)
  - Urinary tract infection [None]
  - Sepsis [None]
  - Immobilisation syndrome [Not Recovered/Not Resolved]
  - Off label use [None]
